FAERS Safety Report 7077033-2 (Version None)
Quarter: 2010Q4

REPORT INFORMATION
  Report Type: 
  Country: None (occurrence: None)
  Receive Date: 20101101
  Receipt Date: 20101022
  Transmission Date: 20110411
  Serious: Yes (Life-Threatening, Hospitalization)
  Sender: FDA-Public Use
  Company Number: FR-ROCHE-729187

PATIENT
  Sex: Female
  Weight: 90 kg

DRUGS (10)
  1. ROACTEMRA [Suspect]
     Indication: RHEUMATOID ARTHRITIS
     Route: 042
     Dates: start: 20100322, end: 20100720
  2. METHOTREXATE [Concomitant]
     Indication: RHEUMATOID ARTHRITIS
     Route: 058
     Dates: start: 20090101
  3. DOLIPRANE [Concomitant]
     Indication: RHEUMATOID ARTHRITIS
     Dosage: DOLIPRANE 1000
     Route: 048
  4. STATIN [Concomitant]
     Route: 048
  5. SPECIAFOLDINE [Concomitant]
     Indication: RHEUMATOID ARTHRITIS
     Dosage: 5 TABLETS/ WEEK (SATURDAY)
     Route: 048
  6. AMLODIPINE [Concomitant]
     Route: 048
  7. NOVONORM [Concomitant]
  8. LANTUS [Concomitant]
     Dosage: DOSE: 18 IU IN EVENING
  9. METOJECT [Concomitant]
     Dosage: THURSDAY
     Route: 058
  10. DETURGYLONE [Concomitant]
     Dosage: DETURGYLONE 1 PULVERIZATION TWICE DAILY FOR 5 DAYS

REACTIONS (2)
  - PYODERMA GANGRENOSUM [None]
  - SEPTIC SHOCK [None]
